FAERS Safety Report 8922379 (Version 2)
Quarter: 2012Q4

REPORT INFORMATION
  Report Type: 
  Country: BR (occurrence: BR)
  Receive Date: 20121123
  Receipt Date: 20121129
  Transmission Date: 20130627
  Serious: Yes (Hospitalization, Other)
  Sender: FDA-Public Use
  Company Number: PHHY2012BR105339

PATIENT
  Age: 58 None
  Sex: Male
  Weight: 110 kg

DRUGS (4)
  1. FORASEQ [Suspect]
     Indication: PULMONARY FUNCTION TEST DECREASED
     Dosage: 1 DF, Q12H
     Route: 048
  2. ALENIA [Suspect]
     Dosage: 2 DF, QD
     Route: 048
  3. ONBRIZE [Concomitant]
     Dosage: 1 DF, QD
     Route: 048
  4. LUMIGAN [Concomitant]
     Indication: INTRAOCULAR PRESSURE INCREASED
     Dosage: 1 DF, QD

REACTIONS (9)
  - Respiratory disorder [Recovered/Resolved]
  - Dyspnoea [Recovered/Resolved]
  - Emphysema [Recovered/Resolved]
  - Cataract [Recovered/Resolved]
  - Fistula [Recovering/Resolving]
  - Abscess [Recovering/Resolving]
  - Intraocular pressure increased [Recovered/Resolved]
  - Weight decreased [Recovered/Resolved]
  - Drug ineffective [Recovering/Resolving]
